FAERS Safety Report 23929472 (Version 1)
Quarter: 2024Q2

REPORT INFORMATION
  Report Type: Spontaneous
  Country: US (occurrence: US)
  Receive Date: 20240601
  Receipt Date: 20240601
  Transmission Date: 20240716
  Serious: No
  Sender: FDA-Public Use
  Company Number: US-RADIUS HEALTH INC.-2023US006686

PATIENT
  Age: 71 Year
  Sex: Female

DRUGS (2)
  1. TYMLOS [Suspect]
     Active Substance: ABALOPARATIDE
     Indication: Osteoporosis
     Dosage: 80 MICROGRAM, QD
     Route: 058
     Dates: start: 202311
  2. TYMLOS [Suspect]
     Active Substance: ABALOPARATIDE
     Indication: Senile osteoporosis

REACTIONS (2)
  - Feeling abnormal [Unknown]
  - Dizziness [Unknown]

NARRATIVE: CASE EVENT DATE: 20240201
